FAERS Safety Report 15043424 (Version 2)
Quarter: 2018Q3

REPORT INFORMATION
  Report Type: Spontaneous
  Country: IT (occurrence: IT)
  Receive Date: 20180621
  Receipt Date: 20180926
  Transmission Date: 20181010
  Serious: Yes (Other)
  Sender: FDA-Public Use
  Company Number: IT-BAYER-2018-114188

PATIENT
  Age: 6 Year
  Sex: Male

DRUGS (1)
  1. ANTIHEMOPHILIC FACTOR (RECOMBINANT), SUCROSE FORMULATED FS [Suspect]
     Active Substance: ANTIHEMOPHILIC FACTOR, HUMAN RECOMBINANT

REACTIONS (2)
  - Anti factor VIII antibody positive [None]
  - Muscle haemorrhage [None]
